FAERS Safety Report 9380122 (Version 1)
Quarter: 2013Q3

REPORT INFORMATION
  Report Type: Spontaneous
  Country: US (occurrence: US)
  Receive Date: 20130702
  Receipt Date: 20130702
  Transmission Date: 20140515
  Serious: Yes (Other)
  Sender: FDA-Public Use
  Company Number: US-TEVA-415550USA

PATIENT
  Sex: Female

DRUGS (2)
  1. TREANDA [Suspect]
     Route: 042
     Dates: start: 20130604, end: 20130604
  2. BENADRYL [Concomitant]
     Route: 042
     Dates: start: 20130604, end: 20130604

REACTIONS (11)
  - Dementia [Unknown]
  - Lip swelling [Unknown]
  - Nausea [Unknown]
  - Decreased appetite [Unknown]
  - Oral herpes [Unknown]
  - Cheilitis [Unknown]
  - Cheilitis [Unknown]
  - Constipation [Unknown]
  - Urinary incontinence [Unknown]
  - Feeling abnormal [Unknown]
  - Personality change [Unknown]
